FAERS Safety Report 21839223 (Version 1)
Quarter: 2023Q1

REPORT INFORMATION
  Report Type: Spontaneous
  Country: US (occurrence: None)
  Receive Date: 20230107
  Receipt Date: 20230107
  Transmission Date: 20230418
  Serious: Yes (Hospitalization)
  Sender: FDA-Public Use
  Company Number: None

PATIENT
  Age: 45 Year
  Sex: Male
  Weight: 123 kg

DRUGS (1)
  1. ASPIRIN [Suspect]
     Active Substance: ASPIRIN

REACTIONS (6)
  - Intentional overdose [None]
  - Vomiting [None]
  - Tinnitus [None]
  - Headache [None]
  - Abdominal pain [None]
  - Suicide attempt [None]

NARRATIVE: CASE EVENT DATE: 20221226
